FAERS Safety Report 12347640 (Version 4)
Quarter: 2016Q3

REPORT INFORMATION
  Report Type: Spontaneous
  Country: SE (occurrence: SE)
  Receive Date: 20160509
  Receipt Date: 20160824
  Transmission Date: 20161109
  Serious: No
  Sender: FDA-Public Use
  Company Number: SE-BRISTOL-MYERS SQUIBB COMPANY-BMS-2016-033191

PATIENT
  Sex: Male

DRUGS (5)
  1. ATENOLOL. [Concomitant]
     Active Substance: ATENOLOL
     Indication: PRODUCT USED FOR UNKNOWN INDICATION
     Dosage: 25 MG, QD
     Route: 065
  2. ELIQUIS [Suspect]
     Active Substance: APIXABAN
     Indication: PRODUCT USED FOR UNKNOWN INDICATION
     Dosage: 5 MG, BID
     Route: 065
     Dates: start: 20160113
  3. SIMVASTATIN. [Concomitant]
     Active Substance: SIMVASTATIN
     Indication: PRODUCT USED FOR UNKNOWN INDICATION
     Dosage: 20 MG, QD
     Route: 065
  4. OMEPRAZOL                          /00661201/ [Concomitant]
     Active Substance: OMEPRAZOLE
     Indication: PRODUCT USED FOR UNKNOWN INDICATION
     Dosage: 20 MG, QD
     Route: 065
  5. FELODIPIN [Concomitant]
     Active Substance: FELODIPINE
     Indication: PRODUCT USED FOR UNKNOWN INDICATION
     Dosage: 2.5 MG, QD
     Route: 065
     Dates: end: 20160527

REACTIONS (6)
  - Swelling face [Recovered/Resolved]
  - Blood pressure decreased [Recovering/Resolving]
  - Therapeutic response unexpected [Unknown]
  - Nausea [Recovered/Resolved]
  - Headache [Recovering/Resolving]
  - Fatigue [Recovering/Resolving]
